FAERS Safety Report 18016518 (Version 3)
Quarter: 2020Q3

REPORT INFORMATION
  Report Type: Spontaneous
  Country: US (occurrence: US)
  Receive Date: 20200714
  Receipt Date: 20200902
  Transmission Date: 20201103
  Serious: No
  Sender: FDA-Public Use
  Company Number: US-ASTRAZENECA-2020SE86826

PATIENT
  Sex: Female

DRUGS (2)
  1. SYMBICORT [Suspect]
     Active Substance: BUDESONIDE\FORMOTEROL FUMARATE DIHYDRATE
     Indication: PULMONARY FIBROSIS
     Dosage: 160/4.5 MCG., 2 PUFFS TWICE A DAY
     Route: 055
     Dates: start: 2018
  2. SPIRVIA [Concomitant]
     Indication: PULMONARY FIBROSIS

REACTIONS (5)
  - Drug delivery system issue [Unknown]
  - Drug dose omission by device [Recovered/Resolved]
  - Device difficult to use [Unknown]
  - Dysphonia [Not Recovered/Not Resolved]
  - Off label use [Not Recovered/Not Resolved]
